FAERS Safety Report 16030263 (Version 1)
Quarter: 2019Q2

REPORT INFORMATION
  Report Type: Spontaneous
  Country: US (occurrence: US)
  Receive Date: 20190304
  Receipt Date: 20190304
  Transmission Date: 20190711
  Serious: Yes (Other)
  Sender: FDA-Public Use
  Company Number: None

PATIENT
  Sex: Female

DRUGS (19)
  1. TEMOZOLOMIDE. [Suspect]
     Active Substance: TEMOZOLOMIDE
     Indication: DRUG THERAPY
     Route: 048
     Dates: start: 20181019
  2. KEPPRA [Concomitant]
     Active Substance: LEVETIRACETAM
  3. NYSTATIN. [Concomitant]
     Active Substance: NYSTATIN
  4. LABETALOL [Concomitant]
     Active Substance: LABETALOL\LABETALOL HYDROCHLORIDE
  5. HUMALOG [Concomitant]
     Active Substance: INSULIN LISPRO
  6. ALPRAZOLAM. [Concomitant]
     Active Substance: ALPRAZOLAM
  7. PROAIR HFA [Concomitant]
     Active Substance: ALBUTEROL SULFATE
  8. ALBUTEROL. [Concomitant]
     Active Substance: ALBUTEROL
  9. COLACE [Concomitant]
     Active Substance: DOCUSATE SODIUM
  10. TEMODAR [Concomitant]
     Active Substance: TEMOZOLOMIDE
  11. MUCINEX [Concomitant]
     Active Substance: GUAIFENESIN
  12. PROTONIX [Concomitant]
     Active Substance: PANTOPRAZOLE SODIUM
  13. PERCOCET [Concomitant]
     Active Substance: ACETAMINOPHEN\OXYCODONE HYDROCHLORIDE
  14. LANTUS [Concomitant]
     Active Substance: INSULIN GLARGINE
  15. DEXAMETHASON [Concomitant]
     Active Substance: DEXAMETHASONE
  16. ZOFRAN [Concomitant]
     Active Substance: ONDANSETRON HYDROCHLORIDE
  17. LOVENOX [Concomitant]
     Active Substance: ENOXAPARIN SODIUM
  18. CARTIA [Concomitant]
  19. BACTRIM [Concomitant]
     Active Substance: SULFAMETHOXAZOLE\TRIMETHOPRIM

REACTIONS (1)
  - Hospice care [None]
